FAERS Safety Report 8551224-3 (Version None)
Quarter: 2012Q3

REPORT INFORMATION
  Report Type: 
  Country: None (occurrence: None)
  Receive Date: 20120730
  Receipt Date: 20120719
  Transmission Date: 20120928
  Serious: Yes (Other)
  Sender: FDA-Public Use
  Company Number: CA-ELI_LILLY_AND_COMPANY-CA201205005302

PATIENT
  Age: 69 Year
  Sex: Male

DRUGS (21)
  1. CORTISONE ACETATE [Concomitant]
     Dosage: UNK
  2. JANUVIA [Concomitant]
  3. HYDROCHLOROTHIAZIDE [Concomitant]
  4. FORTEO [Suspect]
     Dosage: 20 UG, QD
     Route: 058
     Dates: start: 20120216
  5. PREDNISONE [Concomitant]
  6. ATACAND [Concomitant]
  7. VITAMIN D [Concomitant]
  8. FORTEO [Suspect]
     Indication: OSTEOPOROSIS
     Dosage: 20 UG, QD
     Route: 058
     Dates: start: 20110216
  9. CLONAZEPAM [Concomitant]
  10. VITAMIN B-12 [Concomitant]
  11. ASPIRIN [Concomitant]
  12. TAMSULOSIN HCL [Concomitant]
  13. AZATHIOPRINE [Concomitant]
  14. SYNTHROID [Concomitant]
  15. SIMVASTATIN [Concomitant]
  16. EZETIMIBE [Concomitant]
  17. AVODART [Concomitant]
  18. METFORMIN HYDROCHLORIDE [Concomitant]
  19. PRAMIPEXOLE DIHYCHLORIDE [Concomitant]
  20. LYRICA [Concomitant]
  21. PRAVASTATIN [Concomitant]

REACTIONS (11)
  - DIZZINESS [None]
  - BLOOD PRESSURE INCREASED [None]
  - PAIN IN EXTREMITY [None]
  - GAIT DISTURBANCE [None]
  - QUALITY OF LIFE DECREASED [None]
  - BLOOD PRESSURE DECREASED [None]
  - BLOOD PRESSURE FLUCTUATION [None]
  - ASTHENIA [None]
  - VENOUS OCCLUSION [None]
  - OPEN WOUND [None]
  - FATIGUE [None]
